FAERS Safety Report 10723282 (Version 2)
Quarter: 2015Q1

REPORT INFORMATION
  Report Type: Spontaneous
  Country: PT (occurrence: PT)
  Receive Date: 20150120
  Receipt Date: 20150122
  Transmission Date: 20150721
  Serious: Yes (Life-Threatening, Hospitalization)
  Sender: FDA-Public Use
  Company Number: PT-SA-2015SA004449

PATIENT
  Age: 56 Year
  Sex: Male
  Weight: 84 kg

DRUGS (6)
  1. FENTANYL. [Concomitant]
     Active Substance: FENTANYL
     Indication: PAIN
     Dosage: CONTINUOUS RELEASE
     Route: 061
  2. JEVTANA [Suspect]
     Active Substance: CABAZITAXEL
     Indication: PROSTATE CANCER METASTATIC
     Route: 042
     Dates: start: 20141027, end: 20141027
  3. JEVTANA [Suspect]
     Active Substance: CABAZITAXEL
     Indication: PROSTATE CANCER METASTATIC
     Route: 042
     Dates: start: 20141212, end: 20141212
  4. BICALUTAMIDE. [Concomitant]
     Active Substance: BICALUTAMIDE
  5. DENOSUMAB [Concomitant]
     Active Substance: DENOSUMAB
     Indication: METASTASES TO BONE
     Dosage: EVERY 4 WEEKS
     Route: 058
  6. JEVTANA [Suspect]
     Active Substance: CABAZITAXEL
     Indication: PROSTATE CANCER METASTATIC
     Route: 042
     Dates: start: 20150102, end: 20150102

REACTIONS (9)
  - Blood bilirubin abnormal [Recovering/Resolving]
  - Aspartate aminotransferase abnormal [Recovering/Resolving]
  - Petechiae [Recovering/Resolving]
  - Gamma-glutamyltransferase abnormal [Recovering/Resolving]
  - Blood lactate dehydrogenase abnormal [Recovering/Resolving]
  - Epistaxis [Recovering/Resolving]
  - Thrombocytopenia [Recovering/Resolving]
  - Hepatic failure [Recovering/Resolving]
  - Alanine aminotransferase abnormal [Recovering/Resolving]

NARRATIVE: CASE EVENT DATE: 20150109
